FAERS Safety Report 9257040 (Version 2)
Quarter: 2013Q2

REPORT INFORMATION
  Report Type: Spontaneous
  Country: DE (occurrence: DE)
  Receive Date: 20130426
  Receipt Date: 20130528
  Transmission Date: 20140414
  Serious: Yes (Other)
  Sender: FDA-Public Use
  Company Number: DE-JNJFOC-20130412780

PATIENT
  Age: 72 Year
  Sex: Male
  Weight: 98 kg

DRUGS (1)
  1. XARELTO [Suspect]
     Indication: HIP SURGERY
     Route: 048

REACTIONS (1)
  - Skin necrosis [Recovering/Resolving]
